FAERS Safety Report 6527945-0 (Version None)
Quarter: 2009Q4

REPORT INFORMATION
  Report Type: 
  Country: None (occurrence: None)
  Receive Date: 20091229
  Receipt Date: 20091216
  Transmission Date: 20100525
  Serious: Yes (Hospitalization)
  Sender: FDA-Public Use
  Company Number: 2009SP042816

PATIENT
  Age: 60 Year
  Sex: Male

DRUGS (3)
  1. TEMOZOLOMIDE [Suspect]
     Indication: METASTATIC MALIGNANT MELANOMA
     Dosage: ;PO
     Route: 048
     Dates: start: 20090914
  2. ABT-888 (NO PREF. NAME) [Suspect]
     Indication: METASTATIC MALIGNANT MELANOMA
     Dosage: 40 MG; BID; PO
     Route: 048
     Dates: start: 20090914
  3. CYCLIZINE [Concomitant]

REACTIONS (6)
  - DYSPHAGIA [None]
  - NAUSEA [None]
  - NEUTROPENIC SEPSIS [None]
  - OROPHARYNGEAL PAIN [None]
  - PRODUCTIVE COUGH [None]
  - VOMITING [None]
